FAERS Safety Report 10570664 (Version 2)
Quarter: 2014Q4

REPORT INFORMATION
  Report Type: Report from Study
  Country: US (occurrence: US)
  Receive Date: 20141107
  Receipt Date: 20141204
  Transmission Date: 20150529
  Serious: Yes (Hospitalization)
  Sender: FDA-Public Use
  Company Number: US-SA-2014SA150877

PATIENT
  Sex: Female

DRUGS (2)
  1. LANTUS [Suspect]
     Active Substance: INSULIN GLARGINE
     Indication: TYPE 2 DIABETES MELLITUS
     Dosage: DOSE- 50 (UNITS UNSPECIFIED)
     Route: 065
  2. LANTUS [Suspect]
     Active Substance: INSULIN GLARGINE
     Indication: TYPE 2 DIABETES MELLITUS
     Dosage: DOSE- 25 (UNITS UNSPECIFIED)
     Route: 065

REACTIONS (5)
  - Gastrointestinal ulcer [Unknown]
  - Headache [Unknown]
  - Hypertension [Unknown]
  - Abdominal pain [Unknown]
  - Malaise [Unknown]
